FAERS Safety Report 9471728 (Version 2)
Quarter: 2013Q3

REPORT INFORMATION
  Report Type: Spontaneous
  Country: PK (occurrence: None)
  Receive Date: 20130819
  Receipt Date: 20130904
  Transmission Date: 20140515
  Serious: Yes (Hospitalization)
  Sender: FDA-Public Use
  Company Number: SYM-2013-08600

PATIENT
  Age: 41 Year
  Sex: Male

DRUGS (1)
  1. METRONIDAZOLE (METRONIDAZOLE) (METRONIDAZOLE) [Suspect]
     Indication: DIARRHOEA

REACTIONS (8)
  - Toxicity to various agents [None]
  - Neuropathy peripheral [None]
  - Vertigo [None]
  - Dizziness [None]
  - Gait disturbance [None]
  - Dysarthria [None]
  - Metabolic encephalopathy [None]
  - Balance disorder [None]
